FAERS Safety Report 6860371-3 (Version None)
Quarter: 2010Q3

REPORT INFORMATION
  Report Type: 
  Country: None (occurrence: None)
  Receive Date: 20100720
  Receipt Date: 20100707
  Transmission Date: 20110219
  Serious: Yes (Death, Hospitalization)
  Sender: FDA-Public Use
  Company Number: BE-ROCHE-679184

PATIENT
  Sex: Male
  Weight: 76.3 kg

DRUGS (23)
  1. BEVACIZUMAB [Suspect]
     Indication: GLIOBLASTOMA
     Dosage: FORM:VIAL.
     Route: 042
     Dates: start: 20091215, end: 20100120
  2. TEMOZOLOMIDE [Suspect]
     Indication: GLIOBLASTOMA
     Dosage: FORM:GELUCES, QD.
     Route: 048
     Dates: start: 20091215, end: 20100112
  3. LEVETIRACETAM [Concomitant]
     Dates: start: 20091106, end: 20100120
  4. METHYLPREDNISOLONE ACETATE [Concomitant]
     Dates: start: 20091209, end: 20100111
  5. METHYLPREDNISOLONE ACETATE [Concomitant]
     Dates: start: 20100112, end: 20100120
  6. BISOPROLOL [Concomitant]
     Dates: start: 20091203, end: 20100120
  7. EXFORGE [Concomitant]
     Dosage: TDD:10/160 MG
     Dates: start: 20091203, end: 20100112
  8. LORMETAZEPAM [Concomitant]
     Dates: start: 20091223, end: 20100111
  9. SULFAMETHOXAZOLE AND TRIMETHOPRIM DOUBLE STRENGTH [Concomitant]
     Dates: start: 20100106, end: 20100112
  10. ALPRAZOLAM [Concomitant]
     Dates: start: 20100111, end: 20100120
  11. LORAZEPAM [Concomitant]
     Dates: start: 20100111, end: 20100120
  12. PICOSULFATO SODICO [Concomitant]
     Dosage: DRUG NAME:PICOSULFAAT
     Dates: start: 20100118, end: 20100118
  13. ESCITALOPRAM [Concomitant]
     Dates: start: 20100118, end: 20100120
  14. DOMPERIDON [Concomitant]
     Dates: start: 20100118, end: 20100119
  15. PARACETAMOL [Concomitant]
     Dosage: SOS
     Dates: start: 20100111, end: 20100122
  16. TRAMADOL [Concomitant]
     Dosage: SOS
     Dates: start: 20100111, end: 20100122
  17. ENOXAPARIN SODIUM [Concomitant]
     Dates: start: 20100114, end: 20100117
  18. ENOXAPARIN SODIUM [Concomitant]
     Dates: start: 20100120, end: 20100122
  19. AUGMENTIN '125' [Concomitant]
     Dates: start: 20100112, end: 20100120
  20. KABIVEN [Concomitant]
     Dosage: DRUG NAME: PARENTERAC NUTRITION
     Dates: start: 20100114, end: 20100120
  21. METOPROLOL [Concomitant]
     Dates: start: 20100120, end: 20100120
  22. METOPROLOL [Concomitant]
     Dates: start: 20100121, end: 20100121
  23. MOREFINE [Concomitant]
     Dates: start: 20100120, end: 20100122

REACTIONS (2)
  - DIVERTICULITIS [None]
  - LARGE INTESTINE PERFORATION [None]
